FAERS Safety Report 15657255 (Version 1)
Quarter: 2018Q4

REPORT INFORMATION
  Report Type: Report from Study
  Country: TN (occurrence: TN)
  Receive Date: 20181126
  Receipt Date: 20181126
  Transmission Date: 20190205
  Serious: Yes (Death, Hospitalization, Other)
  Sender: FDA-Public Use
  Company Number: TN-SANIK-2018SA158282AA

PATIENT
  Age: 78 Year
  Sex: Female

DRUGS (11)
  1. LEVOTHYROX [Concomitant]
     Active Substance: LEVOTHYROXINE
     Dosage: UNK
     Route: 048
  2. INSULATARD [INSULIN HUMAN INJECTION, ISOPHANE] [Concomitant]
     Dosage: UNK
     Route: 058
  3. OMEPRAZOLE. [Concomitant]
     Active Substance: OMEPRAZOLE
     Route: 048
  4. CLOPIDOGREL BISULFATE. [Suspect]
     Active Substance: CLOPIDOGREL BISULFATE
     Indication: PROPHYLAXIS
  5. PHYSIOTENS [Concomitant]
     Active Substance: MOXONIDINE
     Dosage: UNK
     Route: 048
  6. LASILIX [FUROSEMIDE] [Concomitant]
     Active Substance: FUROSEMIDE
     Dosage: UNK
     Route: 048
  7. ASPEGIC [ACETYLSALICYLIC ACID] [Concomitant]
     Dosage: UNK
     Route: 048
  8. CLOPIDOGREL BISULFATE. [Suspect]
     Active Substance: CLOPIDOGREL BISULFATE
     Indication: MYOCARDIAL INFARCTION
     Dosage: 75 MG, QD
     Route: 048
     Dates: start: 20160212, end: 20180323
  9. LOWRAC [Concomitant]
     Dosage: UNK
     Route: 048
  10. ATOR [Concomitant]
     Active Substance: ATORVASTATIN CALCIUM
     Dosage: UNK
     Route: 048
  11. PURINOL [ALLOPURINOL] [Concomitant]
     Dosage: UNK
     Route: 048

REACTIONS (6)
  - Cardiac arrest [Fatal]
  - Nephrotic syndrome [Unknown]
  - Urinary tract infection [Unknown]
  - Anaemia [Unknown]
  - Cardiac failure [Unknown]
  - Rectal haemorrhage [Unknown]

NARRATIVE: CASE EVENT DATE: 20180319
